FAERS Safety Report 7001115-4 (Version None)
Quarter: 2010Q3

REPORT INFORMATION
  Report Type: 
  Country: None (occurrence: None)
  Receive Date: 20100920
  Receipt Date: 20100908
  Transmission Date: 20110219
  Serious: Yes (Hospitalization)
  Sender: FDA-Public Use
  Company Number: PHHY2010SE59469

PATIENT
  Sex: Male

DRUGS (9)
  1. RITALIN [Suspect]
     Dosage: 20 MG, UNK
     Route: 048
     Dates: start: 20091201
  2. FONTEX [Suspect]
     Indication: ANXIETY DISORDER
     Dosage: 20 MG, UNK
     Route: 048
     Dates: start: 20100505, end: 20100607
  3. SYMBICORT [Concomitant]
     Dosage: UNK
  4. OMEPRAZOLE [Concomitant]
     Dosage: UNK
  5. LERGIGAN [Concomitant]
     Dosage: 25 MG, UNK
  6. PROPAVAN [Concomitant]
     Dosage: 25 MG, UNK
  7. ANTABUSE [Concomitant]
     Dosage: 400 MG, UNK
  8. VENTOLIN [Concomitant]
     Dosage: 2 MG, UNK
  9. OXASCAND [Concomitant]
     Dosage: 15 MGN UNK

REACTIONS (2)
  - DYSKINESIA [None]
  - PNEUMONIA [None]
